FAERS Safety Report 10257622 (Version 2)
Quarter: 2014Q2

REPORT INFORMATION
  Report Type: Spontaneous
  Country: CH (occurrence: CH)
  Receive Date: 20140625
  Receipt Date: 20140625
  Transmission Date: 20141212
  Serious: Yes (Disabling)
  Sender: FDA-Public Use
  Company Number: CH-TEVA-441983ISR

PATIENT
  Age: 67 Year
  Sex: Male
  Weight: 85 kg

DRUGS (5)
  1. TRAMADOL-MEPHA [Suspect]
     Dosage: 6 DOSAGE FORMS DAILY; TAKEN FOR ABOUT 12 YEARS, DAILY
     Route: 048
     Dates: start: 2002
  2. TRAMADOL-MEPHA [Suspect]
     Dosage: 150 GTT DAILY; 1 HUB FROM DOSAGE PUMP=5DROPS, PATIENT USED 3*10 HUBS
     Route: 048
     Dates: start: 2002
  3. ASPIRIN CARDIO 100 MG [Concomitant]
  4. LYRICA [Concomitant]
  5. CARVEDILOL [Concomitant]

REACTIONS (3)
  - Neuropathy peripheral [Not Recovered/Not Resolved]
  - Myalgia [Not Recovered/Not Resolved]
  - Asthenia [Not Recovered/Not Resolved]
